FAERS Safety Report 6407241-2 (Version None)
Quarter: 2009Q4

REPORT INFORMATION
  Report Type: 
  Country: None (occurrence: None)
  Receive Date: 20091020
  Receipt Date: 20091007
  Transmission Date: 20100525
  Serious: Yes (Other)
  Sender: FDA-Public Use
  Company Number: PHHY2009BR38917

PATIENT
  Sex: Male

DRUGS (2)
  1. DIOVAN AMLO FIX [Suspect]
     Indication: HYPERTENSION
     Dosage: 320/5 MG
     Route: 048
  2. DIOVAN AMLO FIX [Suspect]
     Dosage: 160/10 MG

REACTIONS (3)
  - BLOOD PRESSURE INCREASED [None]
  - INFLUENZA [None]
  - MUSCLE SPASMS [None]
